FAERS Safety Report 17532554 (Version 1)
Quarter: 2020Q1

REPORT INFORMATION
  Report Type: Spontaneous
  Country: GB (occurrence: GB)
  Receive Date: 20200312
  Receipt Date: 20200312
  Transmission Date: 20200409
  Serious: Yes (Hospitalization, Disabling)
  Sender: FDA-Public Use
  Company Number: GB-HIKMA PHARMACEUTICALS USA INC.-GB-H14001-20-50743

PATIENT
  Age: 43 Year
  Sex: Female

DRUGS (2)
  1. PHENYTOIN. [Suspect]
     Active Substance: PHENYTOIN
     Indication: PRODUCT USED FOR UNKNOWN INDICATION
     Route: 042
  2. TEPHINE [Suspect]
     Active Substance: BUPRENORPHINE HYDROCHLORIDE
     Indication: EPILEPSY
     Route: 065

REACTIONS (5)
  - Epilepsy [Not Recovered/Not Resolved]
  - Migraine [Recovered/Resolved]
  - Dyskinesia [Recovered/Resolved]
  - Drug interaction [Unknown]
  - Aphasia [Recovered/Resolved]
